FAERS Safety Report 12382896 (Version 1)
Quarter: 2016Q2

REPORT INFORMATION
  Report Type: Spontaneous
  Country: US (occurrence: US)
  Receive Date: 20160518
  Receipt Date: 20160518
  Transmission Date: 20160815
  Serious: No
  Sender: FDA-Public Use
  Company Number: US-GLAXOSMITHKLINE-US2016070052

PATIENT
  Age: 56 Year
  Sex: Female

DRUGS (1)
  1. ABREVA [Suspect]
     Active Substance: DOCOSANOL
     Indication: ORAL HERPES
     Dosage: USED 5 TIMES A DAY,UNK
     Dates: start: 201512, end: 2016

REACTIONS (5)
  - Application site pain [Recovered/Resolved]
  - Application site irritation [Recovered/Resolved]
  - Incorrect drug administration duration [Unknown]
  - Product quality issue [Unknown]
  - Oral herpes [Recovered/Resolved]
